FAERS Safety Report 4658842-3 (Version None)
Quarter: 2005Q2

REPORT INFORMATION
  Report Type: 
  Country: None (occurrence: None)
  Receive Date: 20050511
  Receipt Date: 20030507
  Transmission Date: 20051028
  Serious: Yes (Hospitalization)
  Sender: FDA-Public Use
  Company Number: US-MERCK-0305USA01301

PATIENT
  Age: 49 Year
  Sex: Male
  Weight: 102 kg

DRUGS (25)
  1. ZOCOR [Suspect]
     Indication: STENT PLACEMENT
     Route: 048
     Dates: start: 19980701, end: 19981214
  2. ZOCOR [Suspect]
     Route: 048
     Dates: start: 19981215, end: 20020613
  3. ZOCOR [Suspect]
     Route: 048
     Dates: start: 19980701, end: 19980701
  4. ZOCOR [Suspect]
     Route: 065
     Dates: start: 20020601, end: 20020701
  5. ZOCOR [Suspect]
     Route: 048
     Dates: start: 20040101
  6. ZOCOR [Suspect]
     Indication: CORONARY ARTERY DISEASE
     Route: 048
     Dates: start: 19980701, end: 19981214
  7. ZOCOR [Suspect]
     Route: 048
     Dates: start: 19981215, end: 20020613
  8. ZOCOR [Suspect]
     Route: 048
     Dates: start: 19980701, end: 19980701
  9. ZOCOR [Suspect]
     Route: 065
     Dates: start: 20020601, end: 20020701
  10. ZOCOR [Suspect]
     Route: 048
     Dates: start: 20040101
  11. PRILOSEC [Concomitant]
     Route: 048
  12. PRILOSEC [Concomitant]
     Route: 048
  13. TENORMIN [Concomitant]
     Route: 048
  14. ECOTRIN [Concomitant]
     Route: 048
  15. VICODIN ES [Concomitant]
     Route: 065
  16. VITAMIN B (UNSPECIFIED) [Concomitant]
     Route: 065
  17. VALIUM [Concomitant]
     Route: 065
  18. SOMA [Concomitant]
     Route: 048
     Dates: start: 19980701
  19. SOMA [Concomitant]
     Route: 048
  20. PROLEX D [Concomitant]
     Route: 065
  21. VITAMINS (UNSPECIFIED) [Concomitant]
     Route: 065
  22. SLO-BID [Concomitant]
     Route: 065
  23. NITROSTAT [Concomitant]
     Route: 065
  24. NASONEX [Concomitant]
     Route: 065
  25. PERCOCET [Concomitant]
     Route: 065

REACTIONS (34)
  - ANXIETY [None]
  - ARTHRALGIA [None]
  - ASTHENIA [None]
  - BRONCHITIS [None]
  - CATHETER RELATED COMPLICATION [None]
  - CELLULITIS [None]
  - CHEST INJURY [None]
  - CORONARY ARTERY DISEASE [None]
  - DEHYDRATION [None]
  - DEPRESSION [None]
  - DYSPHAGIA [None]
  - ERUCTATION [None]
  - FEELING ABNORMAL [None]
  - GASTRITIS [None]
  - HAEMATOMA [None]
  - HYPERKERATOSIS [None]
  - HYPERTENSION [None]
  - HYPOAESTHESIA [None]
  - HYPOTHYROIDISM [None]
  - JOINT SPRAIN [None]
  - MENTAL STATUS CHANGES [None]
  - MUSCLE SPASMS [None]
  - MYOCARDIAL INFARCTION [None]
  - MYOSITIS [None]
  - OSTEOARTHRITIS [None]
  - POST LAMINECTOMY SYNDROME [None]
  - RECTAL HAEMORRHAGE [None]
  - RHABDOMYOLYSIS [None]
  - SOFT TISSUE DISORDER [None]
  - TONSIL CANCER [None]
  - TRAUMATIC ARTHRITIS [None]
  - VISION BLURRED [None]
  - WEIGHT DECREASED [None]
  - WEIGHT INCREASED [None]
